FAERS Safety Report 15678726 (Version 1)
Quarter: 2018Q4

REPORT INFORMATION
  Report Type: Spontaneous
  Country: US (occurrence: US)
  Receive Date: 20181201
  Receipt Date: 20181201
  Transmission Date: 20190205
  Serious: No
  Sender: FDA-Public Use
  Company Number: None

PATIENT
  Age: 71 Year
  Sex: Male
  Weight: 81 kg

DRUGS (1)
  1. REPATHA [Suspect]
     Active Substance: EVOLOCUMAB
     Indication: BLOOD CHOLESTEROL INCREASED
     Dates: end: 20181121

REACTIONS (4)
  - Myalgia [None]
  - Pain in extremity [None]
  - Arthralgia [None]
  - Muscle spasms [None]

NARRATIVE: CASE EVENT DATE: 20181121
